FAERS Safety Report 15279089 (Version 1)
Quarter: 2018Q3

REPORT INFORMATION
  Report Type: Spontaneous
  Country: IT (occurrence: IT)
  Receive Date: 20180815
  Receipt Date: 20180815
  Transmission Date: 20181010
  Serious: Yes (Other)
  Sender: FDA-Public Use
  Company Number: IT-TEVA-823585ACC

PATIENT
  Age: 36 Year
  Sex: Female

DRUGS (4)
  1. HALDOL [Suspect]
     Active Substance: HALOPERIDOL
     Indication: PRODUCT USED FOR UNKNOWN INDICATION
     Dosage: 5 MILLIGRAM DAILY; 5 MILLIGRAM DAILY;
     Route: 048
     Dates: start: 20171012, end: 20171012
  2. ABILIFY [Suspect]
     Active Substance: ARIPIPRAZOLE
     Indication: PRODUCT USED FOR UNKNOWN INDICATION
     Dosage: 10 MILLIGRAM DAILY; 10 MILLIGRAM DAILY;
     Route: 048
     Dates: start: 20171012, end: 20171012
  3. EFEXOR ? 37,5 MG CAPSULE RIGIDE A RILASCIO PROLUNGATO [Suspect]
     Active Substance: VENLAFAXINE HYDROCHLORIDE
     Indication: PRODUCT USED FOR UNKNOWN INDICATION
     Dosage: 37.5 MILLIGRAM DAILY; 37.5 MILLIGRAM DAILY;
     Route: 048
     Dates: start: 20171012, end: 20171012
  4. CITALOPRAM [Suspect]
     Active Substance: CITALOPRAM HYDROBROMIDE
     Indication: PRODUCT USED FOR UNKNOWN INDICATION
     Dosage: UNK
     Route: 048
     Dates: start: 20171012, end: 20171012

REACTIONS (2)
  - Intentional self-injury [Unknown]
  - Overdose [Unknown]

NARRATIVE: CASE EVENT DATE: 20171012
